FAERS Safety Report 4946474-9 (Version None)
Quarter: 2006Q1

REPORT INFORMATION
  Report Type: 
  Country: None (occurrence: None)
  Receive Date: 20060313
  Receipt Date: 20060227
  Transmission Date: 20060701
  Serious: Yes (Death)
  Sender: FDA-Public Use
  Company Number: 2006RR-01709

PATIENT
  Age: 26 Year
  Sex: Male

DRUGS (5)
  1. LOPERAMIDE HYDROCHLORIDE(LOPERAMIDE HYDROCHLORIDE) UNKNOWN [Suspect]
  2. ALCOHOL (ALCOHOL) [Suspect]
  3. LITHIUM CARBONATE [Concomitant]
  4. TRAZODONE HCL [Concomitant]
  5. ARIPIPRAZOLE [Concomitant]

REACTIONS (8)
  - DRUG TOXICITY [None]
  - GRANULOMA [None]
  - HEPATITIS [None]
  - INFLAMMATION [None]
  - OESOPHAGITIS [None]
  - OVERDOSE [None]
  - SPLEEN DISORDER [None]
  - VENTRICULAR HYPERTROPHY [None]
